FAERS Safety Report 8524252-1 (Version None)
Quarter: 2012Q3

REPORT INFORMATION
  Report Type: 
  Country: None (occurrence: None)
  Receive Date: 20120720
  Receipt Date: 20120713
  Transmission Date: 20120928
  Serious: Yes (Hospitalization)
  Sender: FDA-Public Use
  Company Number: FR-PFIZER INC-2012169179

PATIENT
  Age: 76 Year
  Sex: Male

DRUGS (1)
  1. TORISEL [Suspect]
     Indication: RENAL NEOPLASM
     Dosage: UNK
     Dates: start: 20090827

REACTIONS (1)
  - LUNG DISORDER [None]
